FAERS Safety Report 4470828-0 (Version None)
Quarter: 2004Q4

REPORT INFORMATION
  Report Type: 
  Country: None (occurrence: None)
  Receive Date: 20041006
  Receipt Date: 20041006
  Transmission Date: 20050328
  Serious: Yes (Hospitalization)
  Sender: FDA-Public Use
  Company Number: None

PATIENT
  Age: 46 Year
  Sex: Female
  Weight: 77.1115 kg

DRUGS (7)
  1. VIOXX [Suspect]
     Indication: RHEUMATOID ARTHRITIS
     Dosage: ORAL   1 TABLET
     Dates: start: 20030101, end: 20041001
  2. VIOXX [Suspect]
     Dosage: ORAL   1 TABLET
     Dates: start: 20040101, end: 20040301
  3. PREDNISONE [Concomitant]
  4. PRILOSEC [Concomitant]
  5. METHOTREXATE [Concomitant]
  6. ACTONEL [Concomitant]
  7. REMICADE [Concomitant]

REACTIONS (2)
  - ARRHYTHMIA [None]
  - PROCEDURAL COMPLICATION [None]
